FAERS Safety Report 12758545 (Version 1)
Quarter: 2016Q3

REPORT INFORMATION
  Report Type: Spontaneous
  Country: BR (occurrence: BR)
  Receive Date: 20160919
  Receipt Date: 20160919
  Transmission Date: 20161109
  Serious: Yes (Other)
  Sender: FDA-Public Use
  Company Number: BR-PFIZER INC-2016420072

PATIENT
  Age: 62 Year
  Sex: Female
  Weight: 90 kg

DRUGS (3)
  1. XALATAN [Suspect]
     Active Substance: LATANOPROST
     Indication: GLAUCOMA
     Dosage: 1 DROP (1,5 MCG OF LATANOPROST) EACH EYE
     Route: 047
  2. PREDCORT [Concomitant]
     Indication: CATARACT OPERATION
     Dosage: 4 IN 4 HOURS 1 DROP
     Route: 047
     Dates: start: 20160824
  3. XALATAN [Suspect]
     Active Substance: LATANOPROST
     Dosage: UNK

REACTIONS (2)
  - Vision blurred [Unknown]
  - Cataract [Unknown]
